FAERS Safety Report 7233709-5 (Version None)
Quarter: 2011Q1

REPORT INFORMATION
  Report Type: 
  Country: None (occurrence: None)
  Receive Date: 20110119
  Receipt Date: 20100406
  Transmission Date: 20110831
  Serious: No
  Sender: FDA-Public Use
  Company Number: US-TEVA-231116USA

PATIENT

DRUGS (3)
  1. INTERFERON BETA NOS [Suspect]
     Indication: MULTIPLE SCLEROSIS
     Route: 030
  2. INTERFERON BETA-1A [Suspect]
     Indication: MULTIPLE SCLEROSIS
  3. COPAXONE [Suspect]
     Indication: MULTIPLE SCLEROSIS
     Route: 058

REACTIONS (1)
  - PSORIASIS [None]
